FAERS Safety Report 15268432 (Version 1)
Quarter: 2018Q3

REPORT INFORMATION
  Report Type: Spontaneous
  Country: US (occurrence: US)
  Receive Date: 20180725
  Receipt Date: 20180725
  Transmission Date: 20181010
  Serious: Yes (Hospitalization)
  Sender: FDA-Public Use
  Company Number: None

PATIENT
  Age: 42 Year
  Sex: Female

DRUGS (14)
  1. HUMIRA [Suspect]
     Active Substance: ADALIMUMAB
     Indication: CROHN^S DISEASE
     Route: 058
     Dates: start: 20170320
  2. CETIRIZINE [Concomitant]
     Active Substance: CETIRIZINE HYDROCHLORIDE
  3. FE****BRATE [Concomitant]
  4. FOLIC ACID. [Concomitant]
     Active Substance: FOLIC ACID
  5. ZYRTEC [Concomitant]
     Active Substance: CETIRIZINE HYDROCHLORIDE
  6. ALLOPURINOL. [Concomitant]
     Active Substance: ALLOPURINOL
  7. QNASL [Concomitant]
     Active Substance: BECLOMETHASONE DIPROPIONATE
  8. HYDROCODONE [Concomitant]
     Active Substance: HYDROCODONE
  9. XOLAIR [Suspect]
     Active Substance: OMALIZUMAB
     Indication: ASTHMA
     Route: 058
     Dates: start: 20170116
  10. DESVENLAFAX [Concomitant]
  11. LEVOTHRYXIN [Concomitant]
  12. CYANOCOBALAM [Concomitant]
     Active Substance: CYANOCOBALAMIN
  13. PREDNISONE. [Concomitant]
     Active Substance: PREDNISONE
  14. MEDROXYPR [Concomitant]

REACTIONS (1)
  - Intestinal obstruction [None]
